FAERS Safety Report 9511157 (Version 1)
Quarter: 2013Q1

REPORT INFORMATION
  Report Type: Spontaneous
  Country: US (occurrence: None)
  Receive Date: 20130305
  Receipt Date: 20130305
  Transmission Date: 20140127
  Serious: No
  Sender: FDA-Public Use
  Company Number: 163-21880-12122479

PATIENT
  Age: 67 Year
  Sex: Female

DRUGS (9)
  1. REVLIMID [Suspect]
     Indication: MYELODYSPLASTIC SYNDROME
     Dosage: 5MG, 28 IN 28D, PO
     Route: 048
     Dates: start: 20120926
  2. AMIODARONE HCL (AMIODARONE HYDROCHLORIDE) [Concomitant]
  3. AMITIZA (LUBIPROSTONE) [Concomitant]
  4. BENADRYL ALLERGY (BENADRYL ALLERGY) [Concomitant]
  5. DANAZOL [Concomitant]
  6. DIAZEPAM (DIAZEPAM) [Concomitant]
  7. DILTIAZEM HCL (DILTIAZEM HYDROCHLORIDE) [Concomitant]
  8. DOXYCYCLINE HYCLATE (DOXYCYCLINE HYCLATE) [Concomitant]
  9. DULCOLAX (BISACODYL) [Concomitant]

REACTIONS (1)
  - Nausea [None]
